FAERS Safety Report 9555045 (Version 1)
Quarter: 2013Q3

REPORT INFORMATION
  Report Type: Spontaneous
  Country: US (occurrence: None)
  Receive Date: 20130724
  Receipt Date: 20130724
  Transmission Date: 20140515
  Serious: Yes (Other)
  Sender: FDA-Public Use
  Company Number: PHEH2013US005688

PATIENT
  Age: 39 Year
  Sex: Female

DRUGS (9)
  1. GILENYA [Suspect]
     Indication: MULTIPLE SCLEROSIS
     Route: 048
     Dates: start: 20130227
  2. TRILEPTAL (OXCARBAZEPINE) [Concomitant]
  3. FLEXERIL (CYCLOBENZAPRINE HYDROCHLORIDE)) [Concomitant]
  4. ULTRAM (TRAMADOL HYDROCHLORIDE) [Concomitant]
  5. XANAX (ALPRAZOLAM) [Concomitant]
  6. LEXAPRO (ESCITALOPRAM OXALATE) [Concomitant]
  7. LEXAPRO (ESCITALOPRAM OXALATE) [Concomitant]
  8. ZANAFLEX (TIZANIDINE HYDROCHLORIDE) [Concomitant]
  9. TOPAMAX (TOPIRAMATE) [Concomitant]

REACTIONS (2)
  - Abdominal pain [None]
  - Abdominal discomfort [None]
